FAERS Safety Report 9213276 (Version 3)
Quarter: 2014Q2

REPORT INFORMATION
  Report Type: Spontaneous
  Country: US (occurrence: US)
  Receive Date: 20130405
  Receipt Date: 20140612
  Transmission Date: 20141212
  Serious: Yes (Hospitalization)
  Sender: FDA-Public Use
  Company Number: US-BAYER-2013-042419

PATIENT
  Age: 33 Year
  Sex: Female
  Weight: 88.44 kg

DRUGS (3)
  1. MIRENA [Suspect]
     Indication: CONTRACEPTION
     Dosage: 20 MCG/24HR, CONT
     Route: 015
     Dates: start: 20100702, end: 20110629
  2. ZOLOFT [Concomitant]
     Dosage: UNK
     Dates: start: 2010, end: 2011
  3. MVI [Concomitant]

REACTIONS (4)
  - Uterine perforation [None]
  - Injury [None]
  - Back pain [None]
  - Emotional distress [None]
